FAERS Safety Report 25359520 (Version 2)
Quarter: 2025Q3

REPORT INFORMATION
  Report Type: Report from Study
  Country: US (occurrence: US)
  Receive Date: 20250526
  Receipt Date: 20250715
  Transmission Date: 20251020
  Serious: Yes (Other)
  Sender: AMGEN
  Company Number: US-AMGEN-USASL2025078341

PATIENT
  Sex: Female

DRUGS (4)
  1. REPATHA [Suspect]
     Active Substance: EVOLOCUMAB
     Indication: Cardiovascular disorder
     Route: 065
     Dates: start: 2023
  2. REPATHA [Suspect]
     Active Substance: EVOLOCUMAB
     Indication: Blood cholesterol increased
     Dosage: 140 MILLIGRAM, Q2WK
     Route: 065
  3. REPATHA [Suspect]
     Active Substance: EVOLOCUMAB
     Dosage: 140 MILLIGRAM, Q2WK
     Route: 065
  4. REPATHA [Suspect]
     Active Substance: EVOLOCUMAB
     Route: 065

REACTIONS (14)
  - Lower respiratory tract infection [Unknown]
  - Pulmonary congestion [Unknown]
  - Adverse event [Unknown]
  - Malaise [Unknown]
  - Fatigue [Unknown]
  - Rhinorrhoea [Unknown]
  - Diarrhoea [Unknown]
  - Influenza like illness [Unknown]
  - Pain [Unknown]
  - Feeling abnormal [Unknown]
  - Lung disorder [Unknown]
  - Vomiting [Unknown]
  - Headache [Unknown]
  - Dermatitis allergic [Unknown]
